FAERS Safety Report 24867570 (Version 1)
Quarter: 2025Q1

REPORT INFORMATION
  Report Type: Spontaneous
  Country: BR (occurrence: BR)
  Receive Date: 20250121
  Receipt Date: 20250121
  Transmission Date: 20250408
  Serious: Yes (Other)
  Sender: Norvium Bioscience
  Company Number: BR-Norvium Bioscience LLC-079791

PATIENT
  Age: 30 Year
  Sex: Female

DRUGS (3)
  1. ZOLPIDEM TARTRATE [Suspect]
     Active Substance: ZOLPIDEM TARTRATE
     Indication: Insomnia
     Route: 048
  2. TRAZODONE [Concomitant]
     Active Substance: TRAZODONE HYDROCHLORIDE
     Indication: Product used for unknown indication
  3. ZOLPIDEM TARTRATE [Suspect]
     Active Substance: ZOLPIDEM TARTRATE
     Indication: Insomnia
     Route: 048

REACTIONS (7)
  - Drug abuse [Not Recovered/Not Resolved]
  - Drug dependence [Recovering/Resolving]
  - Disturbance in attention [Unknown]
  - Amnesia [Unknown]
  - Social problem [Unknown]
  - Drug tolerance [Unknown]
  - Seizure [Unknown]
